FAERS Safety Report 13058546 (Version 3)
Quarter: 2018Q1

REPORT INFORMATION
  Report Type: Spontaneous
  Country: US (occurrence: US)
  Receive Date: 20161223
  Receipt Date: 20180103
  Transmission Date: 20180508
  Serious: No
  Sender: FDA-Public Use
  Company Number: US-BAUSCH-BL-2015-027463

PATIENT
  Age: 52 Year
  Sex: Female

DRUGS (2)
  1. XENAZINE [Suspect]
     Active Substance: TETRABENAZINE
     Dosage: 1 AND 1/2 TABLETS 3 TIMES A DAY
     Route: 048
     Dates: start: 201404
  2. XENAZINE [Suspect]
     Active Substance: TETRABENAZINE
     Indication: HUNTINGTON^S DISEASE
     Route: 048
     Dates: start: 20130424

REACTIONS (8)
  - Muscle strain [Unknown]
  - Myalgia [Unknown]
  - Drug administration error [Unknown]
  - Dysphagia [Unknown]
  - Depression [Unknown]
  - Dry skin [Not Recovered/Not Resolved]
  - Huntington^s disease [Not Recovered/Not Resolved]
  - Paraesthesia [Unknown]

NARRATIVE: CASE EVENT DATE: 201708
